FAERS Safety Report 7940582-6 (Version None)
Quarter: 2011Q4

REPORT INFORMATION
  Report Type: 
  Country: None (occurrence: None)
  Receive Date: 20111128
  Receipt Date: 20111118
  Transmission Date: 20120403
  Serious: Yes (Hospitalization, Other)
  Sender: FDA-Public Use
  Company Number: US-ELI_LILLY_AND_COMPANY-US201111006401

PATIENT
  Sex: Male
  Weight: 83.9 kg

DRUGS (15)
  1. BYETTA [Suspect]
     Dosage: 10 UG, QD
     Route: 058
  2. LASIX [Concomitant]
     Indication: POLYURIA
     Dosage: 20 MG, BID
     Route: 048
  3. HUMALOG [Concomitant]
     Indication: TYPE 2 DIABETES MELLITUS
     Dosage: UNK, PRN
     Route: 058
     Dates: start: 20090901
  4. GLIMEPIRIDE [Concomitant]
     Indication: TYPE 2 DIABETES MELLITUS
     Dosage: UNK
     Route: 048
     Dates: end: 20090901
  5. COUMADIN [Concomitant]
     Dosage: 5 MG, WEEKLY (1/W)
     Route: 048
     Dates: start: 20100901
  6. COREG [Concomitant]
     Indication: HYPERTENSION
     Dosage: 12.5 MG, BID
     Route: 048
  7. TRICOR [Concomitant]
     Indication: BLOOD CHOLESTEROL INCREASED
     Dosage: 145 MG, QD
     Route: 048
  8. LANTUS [Concomitant]
     Indication: TYPE 2 DIABETES MELLITUS
     Dosage: 36 U, EACH EVENING
     Route: 058
     Dates: start: 20090901
  9. COUMADIN [Concomitant]
     Indication: ATRIAL FIBRILLATION
     Dosage: 2.5 MG, QD
     Route: 048
     Dates: start: 20100901
  10. BYETTA [Suspect]
     Indication: TYPE 2 DIABETES MELLITUS
     Dosage: 5 UG, BID
     Route: 058
  11. BYETTA [Suspect]
     Dosage: 10 UG, BID
     Route: 058
  12. AMLODIPINE [Concomitant]
     Indication: HYPERTENSION
     Dosage: 7.5 MG, QD
     Route: 048
  13. LIPITOR [Concomitant]
     Indication: BLOOD CHOLESTEROL INCREASED
     Dosage: 40 MG, QD
     Route: 048
  14. VALSARTAN [Concomitant]
     Indication: HYPERTENSION
     Dosage: 320 MG, QD
     Route: 048
  15. PANTOPRAZOLE [Concomitant]
     Indication: GASTROOESOPHAGEAL REFLUX DISEASE
     Dosage: 40 MG, QD
     Route: 048

REACTIONS (9)
  - LOSS OF CONSCIOUSNESS [None]
  - ATRIAL FIBRILLATION [None]
  - CEREBROVASCULAR ACCIDENT [None]
  - BLOOD GLUCOSE DECREASED [None]
  - OFF LABEL USE [None]
  - BLOOD GLUCOSE INCREASED [None]
  - COLD SWEAT [None]
  - FEELING ABNORMAL [None]
  - DRUG DOSE OMISSION [None]
